FAERS Safety Report 7809189-5 (Version None)
Quarter: 2011Q4

REPORT INFORMATION
  Report Type: 
  Country: None (occurrence: None)
  Receive Date: 20111012
  Receipt Date: 20110928
  Transmission Date: 20120403
  Serious: Yes (Other)
  Sender: FDA-Public Use
  Company Number: US-JNJFOC-20111002436

PATIENT
  Age: 47 Year
  Sex: Female
  Weight: 58.97 kg

DRUGS (2)
  1. NEOSPORIN MAXIMUM STRENGTH CREAM [Suspect]
     Indication: ACNE
     Dosage: ^ENOUGH TO COVER THE SITE^;USED FOR ONE WEEK TO ARM AND 2 DAYS TO BLEMISH ON FACE
     Route: 061
     Dates: end: 20110917
  2. NEOSPORIN MAXIMUM STRENGTH CREAM [Suspect]
     Indication: ARTHROPOD BITE
     Dosage: ^ENOUGH TO COVER THE SITE^;USED FOR ONE WEEK TO ARM AND 2 DAYS TO BLEMISH ON FACE
     Route: 061
     Dates: end: 20110917

REACTIONS (2)
  - APPLICATION SITE BURN [None]
  - OFF LABEL USE [None]
